FAERS Safety Report 14293828 (Version 1)
Quarter: 2017Q4

REPORT INFORMATION
  Report Type: Spontaneous
  Country: US (occurrence: US)
  Receive Date: 20171216
  Receipt Date: 20171216
  Transmission Date: 20180321
  Serious: No
  Sender: FDA-Public Use
  Company Number: US-GLENMARK PHARMACEUTICALS-2017GMK029459

PATIENT

DRUGS (2)
  1. FLUOCINONIDE. [Suspect]
     Active Substance: FLUOCINONIDE
     Indication: CARPAL TUNNEL SYNDROME
  2. FLUOCINONIDE. [Suspect]
     Active Substance: FLUOCINONIDE
     Indication: PAIN IN EXTREMITY
     Dosage: UNK UNK, TID
     Route: 061
     Dates: end: 20171024

REACTIONS (2)
  - Product physical consistency issue [Unknown]
  - Drug ineffective for unapproved indication [Unknown]
